FAERS Safety Report 21746501 (Version 1)
Quarter: 2022Q4

REPORT INFORMATION
  Report Type: Spontaneous
  Country: US (occurrence: None)
  Receive Date: 20221216
  Receipt Date: 20221216
  Transmission Date: 20230112
  Serious: No
  Sender: FDA-Public Use
  Company Number: None

PATIENT
  Sex: Male

DRUGS (1)
  1. SUNITINIB [Suspect]
     Active Substance: SUNITINIB
     Dosage: FREQUENCY : DAILY;?
     Route: 048

REACTIONS (5)
  - Haemoglobin decreased [None]
  - Pulmonary oedema [None]
  - Dyspnoea [None]
  - Tumour compression [None]
  - Tooth extraction [None]
